FAERS Safety Report 17546874 (Version 1)
Quarter: 2020Q1

REPORT INFORMATION
  Report Type: Spontaneous
  Country: DE (occurrence: DE)
  Receive Date: 20200316
  Receipt Date: 20200316
  Transmission Date: 20200409
  Serious: Yes (Hospitalization, Other)
  Sender: FDA-Public Use
  Company Number: DE-ABBVIE-20K-062-3321097-00

PATIENT
  Age: 75 Year
  Sex: Female

DRUGS (2)
  1. IMBRUVICA [Suspect]
     Active Substance: IBRUTINIB
     Indication: PAIN
     Dosage: ADDITIONAL INFORMATION: PZN: 14332898
     Route: 048
     Dates: start: 201909
  2. TRAMADOL HYDROCHLORIDE. [Concomitant]
     Active Substance: TRAMADOL HYDROCHLORIDE
     Indication: PAIN
     Dosage: PROLONGED-RELEASE CAPSULE PZN: 3931667
     Route: 065
     Dates: start: 201911

REACTIONS (2)
  - Muscle spasms [Unknown]
  - Spinal fracture [Unknown]

NARRATIVE: CASE EVENT DATE: 2019
